FAERS Safety Report 6471680-4 (Version None)
Quarter: 2009Q4

REPORT INFORMATION
  Report Type: 
  Country: None (occurrence: None)
  Receive Date: 20091203
  Receipt Date: 20080304
  Transmission Date: 20100525
  Serious: Yes (Hospitalization)
  Sender: FDA-Public Use
  Company Number: US-ELI_LILLY_AND_COMPANY-US200803001546

PATIENT
  Sex: Female

DRUGS (5)
  1. BYETTA [Suspect]
     Indication: TYPE 2 DIABETES MELLITUS
     Dosage: 5 UG, 2/D
     Route: 058
     Dates: start: 20050101
  2. BYETTA [Suspect]
     Dosage: 10 UG, 2/D
     Route: 058
     Dates: end: 20071201
  3. BYETTA [Suspect]
     Dosage: 5 UG, 2/D
     Route: 058
     Dates: start: 20080226, end: 20080302
  4. METFORMIN HCL [Concomitant]
     Indication: DIABETES MELLITUS
     Route: 058
  5. ASPIRIN [Concomitant]
     Indication: HYPERTENSION
     Dosage: 81 MG, UNKNOWN
     Route: 048

REACTIONS (4)
  - DIARRHOEA [None]
  - FEELING JITTERY [None]
  - GASTROINTESTINAL HAEMORRHAGE [None]
  - NAUSEA [None]
